APPROVED DRUG PRODUCT: CINOBAC
Active Ingredient: CINOXACIN
Strength: 250MG
Dosage Form/Route: CAPSULE;ORAL
Application: N018067 | Product #001
Applicant: ELI LILLY AND CO
Approved: Approved Prior to Jan 1, 1982 | RLD: No | RS: No | Type: DISCN